FAERS Safety Report 9034870 (Version 2)
Quarter: 2013Q1

REPORT INFORMATION
  Report Type: Spontaneous
  Country: DK (occurrence: None)
  Receive Date: 20130116
  Receipt Date: 20130129
  Transmission Date: 20140127
  Serious: Yes (Other)
  Sender: FDA-Public Use
  Company Number: 2013MA000330

PATIENT
  Age: 65 Year
  Sex: Male

DRUGS (7)
  1. BUTALBITAL, ASPIRIN (ACETYLSALICYLIC ACID) AND CAFFEINE TABLETS USP 50MG/325MG/40MG (AELLC) (BUTALBITAL, ASPIRIN AND CAFFEINE) [Suspect]
     Indication: ANTICOAGULANT THERAPY
     Dates: start: 20120604, end: 20120820
  2. ATACAND [Concomitant]
  3. EZETROL [Concomitant]
  4. PROBECID [Concomitant]
  5. PRAVASTATIN [Concomitant]
  6. KOLCHICIN [Concomitant]
  7. ALBYL-E [Concomitant]

REACTIONS (7)
  - Thrombosis [None]
  - Cerebrovascular accident [None]
  - Haemochromatosis [None]
  - Malabsorption [None]
  - Product substitution issue [None]
  - Drug ineffective [None]
  - Product quality issue [None]
